FAERS Safety Report 11632474 (Version 3)
Quarter: 2015Q4

REPORT INFORMATION
  Report Type: Spontaneous
  Country: DE (occurrence: DE)
  Receive Date: 20151015
  Receipt Date: 20151120
  Transmission Date: 20160304
  Serious: Yes (Hospitalization, Other)
  Sender: FDA-Public Use
  Company Number: DE-AMGEN-DEUSP2015107285

PATIENT
  Age: 73 Year
  Sex: Female
  Weight: 72 kg

DRUGS (1)
  1. PROLIA [Suspect]
     Active Substance: DENOSUMAB
     Indication: OSTEOPOROSIS
     Dosage: 60 MG
     Route: 065
     Dates: start: 201304, end: 20150410

REACTIONS (6)
  - Tooth extraction [Recovered/Resolved]
  - Impaired healing [Recovered/Resolved]
  - Gingival bleeding [Recovered/Resolved]
  - Osteonecrosis of jaw [Recovered/Resolved]
  - Inflammation [Recovered/Resolved]
  - Musculoskeletal chest pain [Recovering/Resolving]

NARRATIVE: CASE EVENT DATE: 201411
